FAERS Safety Report 7914292-5 (Version None)
Quarter: 2011Q4

REPORT INFORMATION
  Report Type: 
  Country: None (occurrence: None)
  Receive Date: 20111115
  Receipt Date: 20111103
  Transmission Date: 20120403
  Serious: Yes (Death)
  Sender: FDA-Public Use
  Company Number: US-BAXTER-2011BH035311

PATIENT
  Sex: Male

DRUGS (4)
  1. DIANEAL [Suspect]
     Route: 033
     Dates: start: 20111001, end: 20111102
  2. DIANEAL [Suspect]
     Indication: PERITONEAL DIALYSIS
     Route: 033
     Dates: start: 20111001, end: 20111102
  3. DIANEAL [Suspect]
     Route: 033
     Dates: start: 20050101, end: 20111001
  4. DIANEAL [Suspect]
     Indication: PERITONEAL DIALYSIS
     Route: 033
     Dates: start: 20050101, end: 20111001

REACTIONS (3)
  - PNEUMONIA ASPIRATION [None]
  - DYSPNOEA [None]
  - CARDIAC DISORDER [None]
